FAERS Safety Report 13694173 (Version 1)
Quarter: 2017Q2

REPORT INFORMATION
  Report Type: Spontaneous
  Country: IT (occurrence: IT)
  Receive Date: 20170627
  Receipt Date: 20170627
  Transmission Date: 20170830
  Serious: Yes (Hospitalization)
  Sender: FDA-Public Use
  Company Number: PHHY2017IT091440

PATIENT
  Age: 67 Year
  Sex: Female

DRUGS (3)
  1. KETOROLAC [Suspect]
     Active Substance: KETOROLAC\KETOROLAC TROMETHAMINE
     Indication: SCLERODERMA
     Dosage: 30 MG, UNK
     Route: 030
  2. TIZANIDINE. [Interacting]
     Active Substance: TIZANIDINE
     Indication: SCLERODERMA
     Dosage: 4 MG, UNK
     Route: 030
  3. BETAMETHASONE. [Interacting]
     Active Substance: BETAMETHASONE
     Indication: SCLERODERMA
     Dosage: 4 MG, UNK
     Route: 030

REACTIONS (5)
  - Drug prescribing error [Unknown]
  - Labelled drug-drug interaction medication error [Unknown]
  - Product use in unapproved indication [Unknown]
  - Incorrect drug administration duration [Unknown]
  - Melaena [Recovering/Resolving]
